FAERS Safety Report 24019927 (Version 2)
Quarter: 2024Q3

REPORT INFORMATION
  Report Type: Spontaneous
  Country: US (occurrence: US)
  Receive Date: 20240627
  Receipt Date: 20240709
  Transmission Date: 20241016
  Serious: No
  Sender: BAYER
  Company Number: US-BAYER-2024A092283

PATIENT
  Sex: Female

DRUGS (1)
  1. ESTRADIOL [Suspect]
     Active Substance: ESTRADIOL
     Dosage: 0.05 MG, QD
     Route: 062
     Dates: start: 2024

REACTIONS (6)
  - Device adhesion issue [None]
  - Abdominal distension [None]
  - Back pain [None]
  - Peripheral swelling [None]
  - Nausea [None]
  - Headache [None]
